FAERS Safety Report 9432525 (Version 1)
Quarter: 2013Q3

REPORT INFORMATION
  Report Type: Spontaneous
  Country: US (occurrence: US)
  Receive Date: 20130731
  Receipt Date: 20130731
  Transmission Date: 20140515
  Serious: Yes (Other)
  Sender: FDA-Public Use
  Company Number: PHEH2013US015760

PATIENT
  Sex: Male

DRUGS (11)
  1. TEGRETOL-XR [Suspect]
     Indication: CONVULSION
     Dosage: 200 MG, UNK
  2. CARBAMAZEPINE [Suspect]
     Indication: CONVULSION
     Dosage: 200 MG, UNK
  3. LORAZEPAM [Suspect]
     Dosage: UNK UKN, UNK
  4. ZOFRAN [Suspect]
     Dosage: UNK UKN, UNK
  5. LISINOPRIL [Concomitant]
     Dosage: 40 MG, UNK
  6. KEPRA [Concomitant]
     Dosage: 500 MG, UNK
  7. VERAPAMIL [Concomitant]
     Dosage: 120 MG, UNK
  8. REGLAN                                  /USA/ [Concomitant]
     Dosage: UNK UKN, UNK
  9. NOVOLOG [Concomitant]
     Dosage: UNK UKN, UNK
  10. LANTUS [Concomitant]
     Dosage: UNK UKN, UNK
  11. DILAUDID [Concomitant]
     Dosage: UNK UKN, UNK

REACTIONS (2)
  - Pancreatic carcinoma [Unknown]
  - Convulsion [Unknown]
